FAERS Safety Report 5894948-9 (Version None)
Quarter: 2008Q3

REPORT INFORMATION
  Report Type: 
  Country: None (occurrence: None)
  Receive Date: 20080924
  Receipt Date: 20080918
  Transmission Date: 20090109
  Serious: Yes (Other)
  Sender: FDA-Public Use
  Company Number: PHHY2008NL21973

PATIENT
  Sex: Male

DRUGS (2)
  1. SANDOSTATINE (FOR S.C. INJECT.) [Suspect]
     Indication: FISTULA
     Dosage: 0.5 MG/ML, TID
     Route: 058
  2. SANDOSTATINE (FOR S.C. INJECT.) [Suspect]
     Dosage: 0.1 MG/ML, TID
     Route: 058

REACTIONS (3)
  - CONFUSIONAL STATE [None]
  - DEPRESSION [None]
  - GASTROINTESTINAL DISORDER [None]
